FAERS Safety Report 6221265-X (Version None)
Quarter: 2009Q2

REPORT INFORMATION
  Report Type: 
  Country: None (occurrence: None)
  Receive Date: 20090610
  Receipt Date: 20090602
  Transmission Date: 20091009
  Serious: Yes (Hospitalization, Disabling)
  Sender: FDA-Public Use
  Company Number: US-MERCK-0710USA04002

PATIENT
  Age: 45 Year
  Sex: Female
  Weight: 61 kg

DRUGS (5)
  1. FOSAMAX [Suspect]
     Indication: OSTEOPOROSIS
     Route: 048
     Dates: start: 20050304, end: 20050701
  2. PREMARIN [Concomitant]
     Route: 065
  3. NEXIUM [Concomitant]
     Route: 065
  4. CITRACAL CAPLETS + D [Concomitant]
     Route: 065
  5. HORMONES (UNSPECIFIED) [Concomitant]
     Route: 065
     Dates: start: 19810101

REACTIONS (12)
  - ASTHENIA [None]
  - BONE DISORDER [None]
  - FACIAL PAIN [None]
  - MALNUTRITION [None]
  - ORAL DISORDER [None]
  - ORAL PAIN [None]
  - PAIN IN JAW [None]
  - POLYARTHRITIS [None]
  - RHINALGIA [None]
  - SINUS DISORDER [None]
  - TOOTHACHE [None]
  - WEIGHT DECREASED [None]
